FAERS Safety Report 6643317-2 (Version None)
Quarter: 2010Q1

REPORT INFORMATION
  Report Type: 
  Country: None (occurrence: None)
  Receive Date: 20100319
  Receipt Date: 20100305
  Transmission Date: 20100710
  Serious: Yes (Other)
  Sender: FDA-Public Use
  Company Number: US-ROCHE-691901

PATIENT
  Sex: Female

DRUGS (3)
  1. TRASTUZUMAB [Suspect]
     Route: 042
     Dates: start: 20100112
  2. TAXOL [Concomitant]
  3. CARBOPLATIN [Concomitant]

REACTIONS (10)
  - BLOOD PRESSURE INCREASED [None]
  - CATHETER SITE PAIN [None]
  - DIARRHOEA [None]
  - DYSGEUSIA [None]
  - EPISTAXIS [None]
  - HEART RATE INCREASED [None]
  - LOCAL SWELLING [None]
  - RHINORRHOEA [None]
  - STOMATITIS [None]
  - URTICARIA [None]
